FAERS Safety Report 15135007 (Version 1)
Quarter: 2020Q3

REPORT INFORMATION
  Report Type: Report from Study
  Country: ES (occurrence: ES)
  Receive Date: 20180712
  Receipt Date: 20180712
  Transmission Date: 20201105
  Serious: Yes (Death, Hospitalization)
  Sender: FDA-Public Use
  Company Number: ES-PFIZER INC-2018279377

PATIENT
  Age: 68 Year
  Sex: Female

DRUGS (10)
  1. AMIKACIN. [Suspect]
     Active Substance: AMIKACIN
     Indication: SEPSIS
     Dosage: 1 G, 1X/DAY (EVERY 24 HOURS)
     Route: 042
     Dates: start: 20171003, end: 20171004
  2. ALLOPURINOL. [Concomitant]
     Active Substance: ALLOPURINOL
     Dosage: 300 MG, DAILY
     Route: 048
     Dates: start: 20170822
  3. POSACONAZOLE [Concomitant]
     Active Substance: POSACONAZOLE
     Dosage: 300 MG, DAILY
     Route: 048
     Dates: start: 20170822
  4. IDARUBICIN HCL [Suspect]
     Active Substance: IDARUBICIN HYDROCHLORIDE
     Indication: ACUTE MYELOID LEUKAEMIA
     Dosage: 23.16 MG, UNK
     Route: 042
     Dates: start: 20170921, end: 20170925
  5. ONDANSETRON [Concomitant]
     Active Substance: ONDANSETRON
     Dosage: 8 MG, 3X/DAY (EVERY 8 HOURS)
     Route: 042
     Dates: start: 20170822
  6. CYTARABINE. [Suspect]
     Active Substance: CYTARABINE
     Indication: ACUTE MYELOID LEUKAEMIA
     Dosage: 2860 MG, DAILY (EVERY 24 HOURS)
     Route: 042
     Dates: start: 20170921, end: 20170927
  7. FLUDARABINE [Suspect]
     Active Substance: FLUDARABINE PHOSPHATE
     Indication: ACUTE MYELOID LEUKAEMIA
     Dosage: 57.9 MG, UNK
     Dates: start: 20170921, end: 20170926
  8. RANITIDINE. [Concomitant]
     Active Substance: RANITIDINE
     Dosage: 300 MG, 1X/DAY (AT DINNER)
     Route: 048
     Dates: start: 20170822
  9. ACICLOVIR [Concomitant]
     Active Substance: ACYCLOVIR
     Dosage: 800 MG, 2X/DAY (EVERY 12 HOURS)
     Route: 048
     Dates: start: 20170822
  10. COLISTIMETHATE SODIUM. [Suspect]
     Active Substance: COLISTIMETHATE SODIUM
     Indication: SEPSIS
     Dosage: 2000000 IU, 2X/DAY (2 MLL EVERY 12 HOURS)
     Route: 042
     Dates: start: 20171003, end: 20171006

REACTIONS (1)
  - Hypokalaemia [Not Recovered/Not Resolved]

NARRATIVE: CASE EVENT DATE: 20171005
